FAERS Safety Report 15793483 (Version 3)
Quarter: 2019Q1

REPORT INFORMATION
  Report Type: Spontaneous
  Country: US (occurrence: US)
  Receive Date: 20190107
  Receipt Date: 20190218
  Transmission Date: 20190417
  Serious: No
  Sender: FDA-Public Use
  Company Number: US-PFIZER INC-2019005678

PATIENT
  Age: 65 Year
  Sex: Female

DRUGS (2)
  1. XELJANZ [Suspect]
     Active Substance: TOFACITINIB CITRATE
     Dosage: 2 DF, UNK (1 TABLET ONE DAY AND THEN TAKES 2 TABLETS THE NEXT DAY)
  2. XELJANZ [Suspect]
     Active Substance: TOFACITINIB CITRATE
     Indication: RHEUMATOID ARTHRITIS
     Dosage: 1 DF, ONCE A DAY (1 TABLET ONE DAY AND THEN TAKES 2 TABLETS THE NEXT DAY)

REACTIONS (1)
  - Drug effect incomplete [Unknown]
